FAERS Safety Report 7812201-0 (Version None)
Quarter: 2011Q4

REPORT INFORMATION
  Report Type: 
  Country: None (occurrence: None)
  Receive Date: 20111013
  Receipt Date: 20110802
  Transmission Date: 20120403
  Serious: No
  Sender: FDA-Public Use
  Company Number: US-NOVEN-11US002902

PATIENT
  Sex: Female

DRUGS (2)
  1. FENTANYL [Suspect]
     Indication: BACK PAIN
     Dosage: 100 UG/HR, Q72H
     Route: 062
     Dates: start: 20110701
  2. TRAMADOL HCL [Concomitant]
     Indication: BACK PAIN
     Dosage: UNK

REACTIONS (1)
  - INADEQUATE ANALGESIA [None]
